FAERS Safety Report 9759992 (Version 1)
Quarter: 2013Q4

REPORT INFORMATION
  Report Type: Spontaneous
  Country: US (occurrence: US)
  Receive Date: 20131216
  Receipt Date: 20131216
  Transmission Date: 20140711
  Serious: Yes (Hospitalization)
  Sender: FDA-Public Use
  Company Number: US-JNJFOC-20131200730

PATIENT
  Age: 62 Year
  Sex: Male
  Weight: 79.38 kg

DRUGS (18)
  1. FENTANYL TRANSDERMAL SYSTEM [Suspect]
     Indication: NEUROENDOCRINE CARCINOMA
     Route: 062
  2. FENTANYL TRANSDERMAL SYSTEM [Suspect]
     Indication: SPINAL CORD NEOPLASM
     Route: 062
  3. DURAGESIC [Suspect]
     Indication: NEUROENDOCRINE CARCINOMA
     Route: 062
     Dates: start: 2013, end: 2013
  4. DURAGESIC [Suspect]
     Indication: NEUROENDOCRINE CARCINOMA
     Route: 062
     Dates: start: 2013
  5. DURAGESIC [Suspect]
     Indication: NEUROENDOCRINE CARCINOMA
     Route: 062
     Dates: end: 2013
  6. DURAGESIC [Suspect]
     Indication: NEUROENDOCRINE CARCINOMA
     Route: 062
  7. DURAGESIC [Suspect]
     Indication: SPINAL CORD NEOPLASM
     Route: 062
     Dates: end: 2013
  8. DURAGESIC [Suspect]
     Indication: SPINAL CORD NEOPLASM
     Route: 062
     Dates: start: 2013, end: 2013
  9. DURAGESIC [Suspect]
     Indication: SPINAL CORD NEOPLASM
     Route: 062
  10. DURAGESIC [Suspect]
     Indication: SPINAL CORD NEOPLASM
     Route: 062
     Dates: start: 2013
  11. HYDROCODONE [Concomitant]
     Indication: PRODUCT USED FOR UNKNOWN INDICATION
     Dosage: 5- 500 MG TABLET AS NEEDED
     Route: 048
  12. LYRICA [Concomitant]
     Indication: PRODUCT USED FOR UNKNOWN INDICATION
     Dosage: 2 TO 3 TIMES A DAY
     Route: 048
  13. OMEPRAZOLE [Concomitant]
     Route: 048
  14. RANITIDINE [Concomitant]
     Dosage: AT BED IME
     Route: 048
  15. LASIX [Concomitant]
     Indication: LOCAL SWELLING
     Dosage: 1 TO 3 TIMES A DAY
     Route: 048
  16. LASIX [Concomitant]
     Indication: LOCAL SWELLING
     Dosage: 1 TO 3 TIMES A DAY
     Route: 048
  17. ASPIRIN [Concomitant]
     Route: 048
  18. XANAX [Concomitant]
     Route: 048

REACTIONS (12)
  - Septic shock [Recovered/Resolved]
  - Loss of consciousness [Recovered/Resolved]
  - Pneumonia aspiration [Recovered/Resolved]
  - Heart injury [Unknown]
  - Aspiration [Recovered/Resolved]
  - Pain in extremity [Recovered/Resolved]
  - Spinal pain [Recovered/Resolved]
  - Vomiting [Recovered/Resolved]
  - Muscle twitching [Recovered/Resolved]
  - Flushing [Unknown]
  - Lethargy [Unknown]
  - Hypersomnia [Unknown]
